FAERS Safety Report 4328757-9 (Version None)
Quarter: 2004Q1

REPORT INFORMATION
  Report Type: 
  Country: None (occurrence: None)
  Receive Date: 20040329
  Receipt Date: 20040109
  Transmission Date: 20041129
  Serious: No
  Sender: FDA-Public Use
  Company Number: 04P-163-0246764-00

PATIENT
  Age: 79 Year
  Sex: Female
  Weight: 71.6683 kg

DRUGS (5)
  1. HUMIRA [Suspect]
     Indication: RHEUMATOID ARTHRITIS
     Dosage: 40 MG, 1 IN 2 WK , SUBCUTANEOUS
     Route: 058
     Dates: start: 20031212
  2. PENICILLAMINE [Concomitant]
  3. ROFECOXIB [Concomitant]
  4. DYAZIDE [Concomitant]
  5. GLYBURIDE [Concomitant]

REACTIONS (2)
  - INJECTION SITE HAEMORRHAGE [None]
  - INJECTION SITE STINGING [None]
